FAERS Safety Report 16037813 (Version 1)
Quarter: 2019Q1

REPORT INFORMATION
  Report Type: Spontaneous
  Country: FR (occurrence: FR)
  Receive Date: 20190305
  Receipt Date: 20190305
  Transmission Date: 20190418
  Serious: Yes (Hospitalization)
  Sender: FDA-Public Use
  Company Number: PHHY2019FR039864

PATIENT
  Age: 20 Year
  Sex: Male
  Weight: 88 kg

DRUGS (4)
  1. ZOLPIDEM [Suspect]
     Active Substance: ZOLPIDEM\ZOLPIDEM TARTRATE
     Indication: INTENTIONAL OVERDOSE
     Dosage: 1260 MG, UNK
     Route: 048
  2. ALPRAZOLAM. [Suspect]
     Active Substance: ALPRAZOLAM
     Indication: INTENTIONAL OVERDOSE
     Dosage: 90 MG, UNK
     Route: 048
  3. THERALENE [Suspect]
     Active Substance: TRIMEPRAZINE
     Indication: INTENTIONAL OVERDOSE
     Dosage: 3.6 G, UNK
     Route: 048
  4. SERESTA [Suspect]
     Active Substance: OXAZEPAM
     Indication: INTENTIONAL OVERDOSE
     Dosage: 9300 MG, UNK
     Route: 048

REACTIONS (1)
  - Coma [Recovered/Resolved]

NARRATIVE: CASE EVENT DATE: 20180923
